FAERS Safety Report 8798982 (Version 1)
Quarter: 2012Q4

REPORT INFORMATION
  Report Type: Spontaneous
  Country: US (occurrence: None)
  Receive Date: 20120918
  Receipt Date: 20120918
  Transmission Date: 20130627
  Serious: Yes (Other)
  Sender: FDA-Public Use
  Company Number: None

PATIENT
  Age: 1 Year
  Sex: Female
  Weight: 1 kg

DRUGS (2)
  1. MARCAINE [Suspect]
     Indication: SPINAL ANESTHESIA
     Route: 038
     Dates: start: 201209
  2. MARCAINE [Suspect]
     Indication: SPINAL ANESTHESIA
     Dates: end: 060103

REACTIONS (3)
  - Drug ineffective [None]
  - Product quality issue [None]
  - Incorrect product storage [None]
